FAERS Safety Report 5884620-3 (Version None)
Quarter: 2008Q3

REPORT INFORMATION
  Report Type: 
  Country: None (occurrence: None)
  Receive Date: 20080915
  Receipt Date: 20080915
  Transmission Date: 20090109
  Serious: Yes (Other)
  Sender: FDA-Public Use
  Company Number: None

PATIENT
  Sex: Female
  Weight: 74 kg

DRUGS (3)
  1. DARUNAVIR 300MG TABLET TIBOTEC [Suspect]
     Indication: INVESTIGATION
     Dosage: 600MG PO TWICE DAILY
     Route: 048
     Dates: start: 20080820, end: 20080826
  2. RITONAVIR 100MG CAPSULE ABBOTT [Suspect]
     Indication: INVESTIGATION
     Dosage: 100MG PO TWICE DAILY
     Route: 048
     Dates: start: 20080820, end: 20080826
  3. ORAL CONTRACEPTIVE [Concomitant]

REACTIONS (1)
  - RASH MORBILLIFORM [None]
